FAERS Safety Report 8069261-4 (Version None)
Quarter: 2012Q1

REPORT INFORMATION
  Report Type: 
  Country: None (occurrence: None)
  Receive Date: 20120125
  Receipt Date: 20120116
  Transmission Date: 20120608
  Serious: Yes (Hospitalization, Other)
  Sender: FDA-Public Use
  Company Number: US-JNJFOC-20120106136

PATIENT
  Sex: Female
  Weight: 45.7 kg

DRUGS (2)
  1. PENTASA [Concomitant]
  2. REMICADE [Suspect]
     Indication: INFLAMMATORY BOWEL DISEASE
     Route: 042
     Dates: start: 20100327, end: 20100928

REACTIONS (3)
  - PROCTITIS [None]
  - INTESTINAL DILATATION [None]
  - VOMITING [None]
